FAERS Safety Report 4465447-6 (Version None)
Quarter: 2004Q4

REPORT INFORMATION
  Report Type: 
  Country: None (occurrence: None)
  Receive Date: 20041004
  Receipt Date: 20040708
  Transmission Date: 20050328
  Serious: Yes (Hospitalization)
  Sender: FDA-Public Use
  Company Number: US-BRISTOL-MYERS SQUIBB COMPANY-12644712

PATIENT
  Age: 42 Year
  Sex: Male
  Weight: 109 kg

DRUGS (7)
  1. REYATAZ [Suspect]
     Indication: HIV INFECTION
     Route: 048
     Dates: start: 20040702, end: 20040704
  2. RITONAVIR [Concomitant]
     Indication: HIV INFECTION
     Dates: start: 20040101
  3. VIREAD [Concomitant]
     Indication: HIV INFECTION
     Dates: start: 20040101
  4. LEVOFLOXACIN [Concomitant]
     Indication: SINUSITIS
     Dates: start: 20040101
  5. LORATADINE [Concomitant]
     Indication: SINUSITIS
     Dates: start: 20040101
  6. SUDAFED S.A. [Concomitant]
     Indication: SINUSITIS
     Dates: start: 20040101
  7. GUAIFENESIN [Concomitant]
     Indication: SINUSITIS
     Dates: start: 20040101

REACTIONS (5)
  - ATRIOVENTRICULAR BLOCK COMPLETE [None]
  - BLOOD BILIRUBIN INCREASED [None]
  - SINUS ARREST [None]
  - SINUSITIS [None]
  - SYNCOPE [None]
